FAERS Safety Report 19039246 (Version 1)
Quarter: 2021Q1

REPORT INFORMATION
  Report Type: Spontaneous
  Country: CN (occurrence: CN)
  Receive Date: 20210322
  Receipt Date: 20210322
  Transmission Date: 20210420
  Serious: Yes (Hospitalization, Other)
  Sender: FDA-Public Use
  Company Number: CN-ACCORD-220117

PATIENT
  Age: 55 Year
  Sex: Female

DRUGS (4)
  1. DOCETAXEL. [Suspect]
     Active Substance: DOCETAXEL
     Indication: ENDOMETRIAL ADENOCARCINOMA
  2. NEDAPLATIN [Suspect]
     Active Substance: NEDAPLATIN
     Indication: ENDOMETRIAL ADENOCARCINOMA
  3. NEDAPLATIN [Suspect]
     Active Substance: NEDAPLATIN
     Indication: CHORIOCARCINOMA
  4. DOCETAXEL. [Suspect]
     Active Substance: DOCETAXEL
     Indication: ENDOMETRIAL ADENOCARCINOMA

REACTIONS (3)
  - Dizziness [Recovered/Resolved]
  - White blood cell count decreased [Recovered/Resolved]
  - Headache [Recovered/Resolved]
